FAERS Safety Report 24253808 (Version 1)
Quarter: 2024Q3

REPORT INFORMATION
  Report Type: Report from Study
  Country: CA (occurrence: CA)
  Receive Date: 20240827
  Receipt Date: 20240827
  Transmission Date: 20241017
  Serious: Yes (Hospitalization, Other)
  Sender: BIOCON
  Company Number: CA-BIOCON BIOLOGICS LIMITED-BBL2024006142

PATIENT

DRUGS (5)
  1. HULIO [Suspect]
     Active Substance: ADALIMUMAB-FKJP
     Indication: Crohn^s disease
     Dosage: 40 MILLIGRAM, QW, 1 EVERY 1 WEEKS, SOLUTION SUBCUTANEOUS
     Route: 058
  2. HULIO [Suspect]
     Active Substance: ADALIMUMAB-FKJP
     Dosage: 80 MILLIGRAM, QW, 1 EVERY 1 WEEKS, SOLUTION SUBCUTANEOUS
     Route: 058
  3. HULIO [Suspect]
     Active Substance: ADALIMUMAB-FKJP
     Dosage: 40 MILLIGRAM, QW, 1 EVERY 1 WEEKS, SOLUTION SUBCUTANEOUS
     Route: 058
  4. HULIO [Suspect]
     Active Substance: ADALIMUMAB-FKJP
     Dosage: 80 MILLIGRAM, QW, 1 EVERY 1 WEEKS, SOLUTION SUBCUTANEOUS
     Route: 058
  5. HUMIRA [Suspect]
     Active Substance: ADALIMUMAB
     Indication: Crohn^s disease
     Dosage: 80 MILLIGRAM, QW, 1 EVERY 1 WEEK
     Route: 065

REACTIONS (8)
  - Anastomotic ulcer [Unknown]
  - Intestinal stenosis [Unknown]
  - Faecal calprotectin increased [Unknown]
  - Colitis [Unknown]
  - Crohn^s disease [Unknown]
  - Diarrhoea [Unknown]
  - Abdominal pain lower [Unknown]
  - Off label use [Unknown]
